FAERS Safety Report 7325027-1 (Version None)
Quarter: 2011Q1

REPORT INFORMATION
  Report Type: 
  Country: None (occurrence: None)
  Receive Date: 20110301
  Receipt Date: 20110217
  Transmission Date: 20110831
  Serious: Yes (Hospitalization, Disabling, Other)
  Sender: FDA-Public Use
  Company Number: CZ-BAYER-2011-015425

PATIENT
  Sex: Male

DRUGS (1)
  1. ULTRAVIST 150 [Suspect]
     Indication: COMPUTERISED TOMOGRAM
     Dosage: 1 DF, UNK
     Route: 040
     Dates: start: 20110215

REACTIONS (5)
  - FACE OEDEMA [None]
  - RESPIRATORY TRACT OEDEMA [None]
  - ERYTHEMA [None]
  - EYELID OEDEMA [None]
  - MUSCLE RIGIDITY [None]
